FAERS Safety Report 17347549 (Version 2)
Quarter: 2020Q1

REPORT INFORMATION
  Report Type: Spontaneous
  Country: US (occurrence: US)
  Receive Date: 20200130
  Receipt Date: 20200220
  Transmission Date: 20200409
  Serious: No
  Sender: FDA-Public Use
  Company Number: US-VERTEX PHARMACEUTICALS-2020-001269

PATIENT
  Sex: Male
  Weight: 69 kg

DRUGS (2)
  1. KITABIS PAK [Concomitant]
     Active Substance: TOBRAMYCIN
     Dosage: UNK
  2. TRIKAFTA [Suspect]
     Active Substance: ELEXACAFTOR\IVACAFTOR\TEZACAFTOR
     Indication: CYSTIC FIBROSIS
     Dosage: BID
     Route: 048

REACTIONS (5)
  - Fatigue [Unknown]
  - Hypersomnia [Unknown]
  - Agitation [Not Recovered/Not Resolved]
  - Cough [Unknown]
  - Back pain [Unknown]
